FAERS Safety Report 19018252 (Version 1)
Quarter: 2021Q1

REPORT INFORMATION
  Report Type: Report from Study
  Country: US (occurrence: US)
  Receive Date: 20210317
  Receipt Date: 20210317
  Transmission Date: 20210420
  Serious: Yes (Death)
  Sender: FDA-Public Use
  Company Number: US-PACIRA-2021000219

PATIENT
  Age: 45 Year
  Sex: Male
  Weight: 78 kg

DRUGS (12)
  1. OXYCODONE [Concomitant]
     Active Substance: OXYCODONE
     Indication: POSTOPERATIVE ANALGESIA
     Dosage: 50 MG USED IN PACU
     Route: 048
  2. TYLENOL [Concomitant]
     Active Substance: ACETAMINOPHEN
     Indication: POSTOPERATIVE ANALGESIA
     Dosage: 3 G IN PACU
     Route: 065
  3. TYLENOL [Concomitant]
     Active Substance: ACETAMINOPHEN
     Indication: POSTOPERATIVE ANALGESIA
     Dosage: 500 MG 1?2 EVERY 6 HOURS AS NEEDED 4000 MG MAXIMUM
     Route: 048
  4. VISTARIL [Concomitant]
     Active Substance: HYDROXYZINE PAMOATE
     Indication: POSTOPERATIVE ANALGESIA
     Dosage: 225 MG USED IN PACU
     Route: 065
  5. VISTARIL [Concomitant]
     Active Substance: HYDROXYZINE PAMOATE
     Indication: POSTOPERATIVE ANALGESIA
     Dosage: 25 MG EVERY 4 HOURS AS NEEDED (Q4H PRN) PRESCRIBED AFTER DISCHARGE
     Route: 048
  6. EXPAREL [Suspect]
     Active Substance: BUPIVACAINE
     Indication: POSTOPERATIVE ANALGESIA
     Dosage: 10 ML MIXED WITH 10 ML MARCAINE+EPI AND 1800 ML SALINE/LACTATED RINGER SOLUTION
     Route: 065
     Dates: start: 20190130, end: 20190130
  7. FENTANYL. [Concomitant]
     Active Substance: FENTANYL
     Indication: INTRAOPERATIVE CARE
     Dosage: 0.1 MG
     Route: 042
  8. OXYCODONE [Concomitant]
     Active Substance: OXYCODONE
     Indication: POSTOPERATIVE ANALGESIA
     Dosage: (X2) 5 ? 10MG Q4HR PRESCRIBED AFTER DISCHARGE
     Route: 065
  9. MARCAINE WITH EPINEPHRINE [Suspect]
     Active Substance: BUPIVACAINE HYDROCHLORIDE\EPINEPHRINE BITARTRATE
     Indication: POSTOPERATIVE ANALGESIA
     Dosage: 10 ML MIXED WITH 10 ML EXPAREL AND 1800 ML SALINE/LACTATED RINGER SOLUTION
     Route: 065
     Dates: start: 20190130, end: 20190130
  10. KETAMINE [Concomitant]
     Active Substance: KETAMINE
     Indication: INTRAOPERATIVE CARE
     Dosage: 50 MG
     Route: 042
  11. DILAUDID [Concomitant]
     Active Substance: HYDROMORPHONE HYDROCHLORIDE
     Indication: POSTOPERATIVE ANALGESIA
     Dosage: 1 MG
     Route: 042
  12. VALIUM [Concomitant]
     Active Substance: DIAZEPAM
     Indication: POSTOPERATIVE ANALGESIA
     Dosage: 5 MG USED IN PACU
     Route: 065

REACTIONS (1)
  - Haemorrhagic stroke [Fatal]
